FAERS Safety Report 9674240 (Version 1)
Quarter: 2013Q4

REPORT INFORMATION
  Report Type: Report from Study
  Country: GB (occurrence: GB)
  Receive Date: 20131107
  Receipt Date: 20131107
  Transmission Date: 20140711
  Serious: Yes (Death, Other)
  Sender: FDA-Public Use
  Company Number: GB-ROCHE-1297919

PATIENT
  Sex: 0

DRUGS (5)
  1. CAPECITABINE [Suspect]
     Indication: COLORECTAL CANCER
     Dosage: ON DAY 1 WITH PAZOPANIB AND OXALIPLATIN AND THEN FROM DAY 2 TO 14 WITH PAZOPANIB ONLY OF 21 DAY CYCL
     Route: 048
  2. PAZOPANIB [Suspect]
     Indication: COLORECTAL CANCER
     Dosage: ON DAY 1 (COHORT 0)
     Route: 048
  3. PAZOPANIB [Suspect]
     Dosage: ON DAYS 2 TO 14 OF 21 DAYS CYCLE (COHORT 0) ALONG WITH CAPCECITABINE
     Route: 048
  4. PAZOPANIB [Suspect]
     Dosage: ON DAYS 15-21 OF EVERY 21  DAY CYCLE (COHORT 0) TO BE ADMINISTERED ALONE.
     Route: 048
  5. OXALIPLATIN [Suspect]
     Indication: COLORECTAL CANCER
     Dosage: OVER 2 HOURS ON DAY 1
     Route: 042

REACTIONS (17)
  - Arrhythmia [Fatal]
  - Sudden death [Fatal]
  - Sepsis [Unknown]
  - Palmar-plantar erythrodysaesthesia syndrome [Unknown]
  - Haemorrhage [Unknown]
  - Hypertension [Unknown]
  - Neutropenia [Unknown]
  - Thrombocytopenia [Unknown]
  - Vomiting [Unknown]
  - Hyponatraemia [Unknown]
  - Hypokalaemia [Unknown]
  - Febrile neutropenia [Unknown]
  - Neuropathy peripheral [Unknown]
  - Asthenia [Unknown]
  - Mucosal inflammation [Unknown]
  - Lethargy [Unknown]
  - Diarrhoea [Unknown]
